FAERS Safety Report 15189835 (Version 3)
Quarter: 2018Q3

REPORT INFORMATION
  Report Type: Spontaneous
  Country: JP (occurrence: JP)
  Receive Date: 20180724
  Receipt Date: 20180911
  Transmission Date: 20181010
  Serious: Yes (Other)
  Sender: FDA-Public Use
  Company Number: JP-BAYER-2017-224236

PATIENT
  Age: 33 Year
  Sex: Male

DRUGS (3)
  1. NEXAVAR [Suspect]
     Active Substance: SORAFENIB
     Indication: METASTASES TO LUNG
  2. NEXAVAR [Suspect]
     Active Substance: SORAFENIB
     Indication: HEPATOCELLULAR CARCINOMA
     Dosage: DAILY DOSE 800 MG
     Route: 048
     Dates: start: 201609
  3. STIVARGA [Suspect]
     Active Substance: REGORAFENIB
     Indication: HEPATOCELLULAR CARCINOMA
     Dosage: 3 WEEKS CONTINUOUS ADMINISTRATION THEN STOP 1 WEEK
     Route: 048
     Dates: start: 20170719

REACTIONS (5)
  - Hepatocellular carcinoma [Unknown]
  - Fatigue [Unknown]
  - Malaise [None]
  - Metastases to bone [Unknown]
  - Palmar-plantar erythrodysaesthesia syndrome [Unknown]
